FAERS Safety Report 14575990 (Version 2)
Quarter: 2018Q2

REPORT INFORMATION
  Report Type: Report from Study
  Country: IT (occurrence: IT)
  Receive Date: 20180227
  Receipt Date: 20180606
  Transmission Date: 20180711
  Serious: Yes (Life-Threatening, Other)
  Sender: FDA-Public Use
  Company Number: IT-ACCORD-063961

PATIENT
  Age: 49 Year
  Sex: Male

DRUGS (1)
  1. QUETIAPINE. [Suspect]
     Active Substance: QUETIAPINE
     Dosage: STRENGTH: 100 MG
     Route: 048
     Dates: start: 20171204, end: 20171204

REACTIONS (3)
  - Drug abuse [Unknown]
  - Coma [Not Recovered/Not Resolved]
  - Neuroleptic malignant syndrome [Not Recovered/Not Resolved]

NARRATIVE: CASE EVENT DATE: 20171204
